FAERS Safety Report 8935494 (Version 1)
Quarter: 2012Q4

REPORT INFORMATION
  Report Type: Spontaneous
  Country: US (occurrence: None)
  Receive Date: 20121128
  Receipt Date: 20121128
  Transmission Date: 20130627
  Serious: Yes (Other)
  Sender: FDA-Public Use
  Company Number: None

PATIENT
  Age: 25 Year
  Sex: Female

DRUGS (1)
  1. AFINITOR [Suspect]
     Indication: CARCINOMA
     Dosage: 1 qd po
     Route: 048

REACTIONS (2)
  - Contusion [None]
  - Stomatitis [None]
